FAERS Safety Report 9773611 (Version 1)
Quarter: 2013Q4

REPORT INFORMATION
  Report Type: Spontaneous
  Country: GB (occurrence: None)
  Receive Date: 20131217
  Receipt Date: 20131217
  Transmission Date: 20140711
  Serious: Yes (Other)
  Sender: FDA-Public Use
  Company Number: AUR-APL-2013-10235

PATIENT
  Sex: 0

DRUGS (1)
  1. DONEPEZIL (DONEPEZIL) [Suspect]
     Dates: start: 20131030

REACTIONS (1)
  - Epistaxis [None]
